FAERS Safety Report 9565926 (Version 1)
Quarter: 2013Q3

REPORT INFORMATION
  Report Type: Spontaneous
  Country: GB (occurrence: GB)
  Receive Date: 20130930
  Receipt Date: 20130930
  Transmission Date: 20140515
  Serious: Yes (Life-Threatening, Hospitalization)
  Sender: FDA-Public Use
  Company Number: GB-ASTRAZENECA-2013SE72042

PATIENT
  Age: 57 Year
  Sex: Male

DRUGS (2)
  1. LIGNOCAINE [Suspect]
     Indication: ARRHYTHMIA PROPHYLAXIS
     Dosage: 1 MG/KG IN 1 MINUTE
     Route: 042
  2. PHENYTOIN [Interacting]
     Indication: ARRHYTHMIA PROPHYLAXIS
     Dosage: 250 MG IN 5 MINUTES
     Route: 042

REACTIONS (2)
  - Drug interaction [Unknown]
  - Sinoatrial block [Recovered/Resolved]
